FAERS Safety Report 15983583 (Version 3)
Quarter: 2019Q1

REPORT INFORMATION
  Report Type: Spontaneous
  Country: DE (occurrence: DE)
  Receive Date: 20190220
  Receipt Date: 20190325
  Transmission Date: 20190418
  Serious: Yes (Death, Hospitalization)
  Sender: FDA-Public Use
  Company Number: DE-ROCHE-2263100

PATIENT
  Age: 93 Year
  Sex: Female
  Weight: 58 kg

DRUGS (11)
  1. MOXIFLOXACIN. [Suspect]
     Active Substance: MOXIFLOXACIN
     Dosage: 2 TABLETS (MANUFACTURER UNKNOWN) RECEIVED FROM PHYSICIAN AT A HOME VISIT , AFTERWARDS MOXOFLOXACIN H
     Route: 048
  2. MOXIFLOXACIN. [Suspect]
     Active Substance: MOXIFLOXACIN
     Indication: URINARY TRACT INFECTION
     Route: 048
     Dates: start: 20181215, end: 20181219
  3. DIAZEPAM. [Suspect]
     Active Substance: DIAZEPAM
     Indication: PRODUCT USED FOR UNKNOWN INDICATION
     Route: 065
  4. DOMPERIDON [Suspect]
     Active Substance: DOMPERIDONE
     Indication: NAUSEA
  5. OMEP [Concomitant]
     Active Substance: OMEPRAZOLE
     Route: 065
  6. MCP [Concomitant]
     Active Substance: METOCLOPRAMIDE HYDROCHLORIDE
     Indication: ENTERAL NUTRITION
     Dosage: 1-1, LONG TERM MEDICATION
     Route: 065
     Dates: start: 2016
  7. TORASEMIDE [Concomitant]
     Active Substance: TORSEMIDE
     Indication: HYPERTENSION
     Dosage: 1/4 TABLET
     Route: 065
  8. DOMPERIDON [Suspect]
     Active Substance: DOMPERIDONE
     Indication: VOMITING
     Route: 048
     Dates: start: 2015, end: 2018
  9. METOHEXAL [Concomitant]
     Active Substance: METOPROLOL
     Indication: HYPERTENSION
     Dosage: 1/2 TABLET
     Route: 065
  10. ASS PROTECT [Concomitant]
     Indication: PROPHYLAXIS
     Route: 065
     Dates: start: 1997
  11. HEPARIN [Concomitant]
     Active Substance: HEPARIN SODIUM
     Dosage: 50000 IU AND 750 ML IN ALTERATION, 0-1-0
     Route: 065
     Dates: start: 2016

REACTIONS (17)
  - Panic reaction [Fatal]
  - Pneumonia aspiration [Fatal]
  - Oral discharge [Fatal]
  - Scatolia [Fatal]
  - Pyrexia [Fatal]
  - Panic attack [Recovering/Resolving]
  - Agitation [Recovering/Resolving]
  - Hallucination [Fatal]
  - Psychomotor hyperactivity [Fatal]
  - Cystitis [Recovering/Resolving]
  - Confusional state [Fatal]
  - Anxiety disorder [Fatal]
  - Heart rate increased [Fatal]
  - Mental disorder [Fatal]
  - Abnormal behaviour [Fatal]
  - Logorrhoea [Fatal]
  - Crying [Fatal]

NARRATIVE: CASE EVENT DATE: 20181215
